FAERS Safety Report 5415521-2 (Version None)
Quarter: 2007Q3

REPORT INFORMATION
  Report Type: 
  Country: None (occurrence: None)
  Receive Date: 20070815
  Receipt Date: 20070809
  Transmission Date: 20080115
  Serious: Yes (Other)
  Sender: FDA-Public Use
  Company Number: A0666054A

PATIENT
  Age: 83 Year
  Sex: Female

DRUGS (3)
  1. PAXIL CR [Suspect]
     Indication: PANIC DISORDER
     Dosage: 37.5MG PER DAY
     Route: 048
  2. LIPITOR [Concomitant]
  3. PRILOSEC [Concomitant]

REACTIONS (6)
  - AGGRESSION [None]
  - CRYING [None]
  - DEPRESSED MOOD [None]
  - DRUG DEPENDENCE [None]
  - FEELING ABNORMAL [None]
  - TREATMENT NONCOMPLIANCE [None]
